FAERS Safety Report 19179304 (Version 1)
Quarter: 2021Q2

REPORT INFORMATION
  Report Type: Spontaneous
  Country: IT (occurrence: IT)
  Receive Date: 20210426
  Receipt Date: 20210426
  Transmission Date: 20210717
  Serious: Yes (Life-Threatening)
  Sender: FDA-Public Use
  Company Number: IT-SUN PHARMACEUTICAL INDUSTRIES LTD-2021RR-292987

PATIENT
  Age: 68 Year
  Sex: Male
  Weight: 100 kg

DRUGS (9)
  1. VECTIBIX [Suspect]
     Active Substance: PANITUMUMAB
     Indication: METASTASES TO LUNG
     Dosage: 400 MILLIGRAM, CYCLICAL
     Route: 042
     Dates: start: 20210323, end: 20210412
  2. ZOPRANOL 30 MG COMPRESSE RIVESTITE CON FILM [Concomitant]
     Indication: PRODUCT USED FOR UNKNOWN INDICATION
     Dosage: 30 MILLIGRAM, UNK
     Route: 048
  3. OXALIPLATIN. [Suspect]
     Active Substance: OXALIPLATIN
     Indication: METASTASES TO LUNG
     Dosage: 140 MILLIGRAM, CYCLICAL
     Route: 042
     Dates: start: 20210323, end: 20210412
  4. VECTIBIX [Suspect]
     Active Substance: PANITUMUMAB
     Indication: METASTASES TO LUNG
     Dosage: 100 MILLIGRAM, CYCLICAL
     Route: 042
     Dates: start: 20210323, end: 20210412
  5. LOBIDIUR 5 MG/12,5 MG COMPRESSE RIVESTITE CON FILM [Concomitant]
     Indication: PRODUCT USED FOR UNKNOWN INDICATION
     Dosage: 5 MILLIGRAM, UNK
     Route: 048
  6. MINOCIN 100 MG CAPSULE RIGIDE [Concomitant]
     Indication: PRODUCT USED FOR UNKNOWN INDICATION
     Dosage: 100 MILLIGRAM, UNK
     Route: 048
     Dates: start: 20210323, end: 20210412
  7. COMIRNATY [Concomitant]
     Active Substance: TOZINAMERAN
     Indication: COVID-19 IMMUNISATION
     Dosage: 0.3 MILLILITER, UNK
     Route: 030
     Dates: start: 20210407, end: 20210407
  8. CALCIUM LEVOFOLINATE [Suspect]
     Active Substance: LEVOLEUCOVORIN CALCIUM
     Indication: METASTASES TO LUNG
     Dosage: 350 MILLIGRAM, CYCLICAL
     Route: 042
     Dates: start: 20210323, end: 20210412
  9. CARDIRENE 75 MG [Concomitant]
     Active Substance: ASPIRIN DL-LYSINE
     Indication: PRODUCT USED FOR UNKNOWN INDICATION
     Dosage: 75 MILLIGRAM, UNK
     Route: 048

REACTIONS (4)
  - Acute myocardial infarction [Unknown]
  - Bradycardia [Unknown]
  - Oxygen saturation decreased [Unknown]
  - Hypotension [Unknown]

NARRATIVE: CASE EVENT DATE: 20210412
